FAERS Safety Report 24929760 (Version 1)
Quarter: 2025Q1

REPORT INFORMATION
  Report Type: Spontaneous
  Country: US (occurrence: US)
  Receive Date: 20250205
  Receipt Date: 20250205
  Transmission Date: 20250409
  Serious: No
  Sender: SANOFI AVENTIS
  Company Number: US-SA-2025SA034679

PATIENT
  Age: 51 Year
  Sex: Male
  Weight: 63.64 kg

DRUGS (7)
  1. DUPIXENT [Suspect]
     Active Substance: DUPILUMAB
     Indication: Psoriasis
     Dosage: 300 MG, QOW
     Route: 058
     Dates: start: 202403
  2. AVEENO [Concomitant]
     Active Substance: DIMETHICONE\HOMOSALATE\OCTINOXATE\OCTISALATE\TITANIUM DIOXIDE
  3. EUCERIN ECZEMA RELIEF [Concomitant]
  4. GOLD BOND ANTI-ITCH [Concomitant]
  5. PIMECROLIMUS [Concomitant]
     Active Substance: PIMECROLIMUS
  6. HYDROCORTISONE [Concomitant]
     Active Substance: HYDROCORTISONE
  7. BETAMETHASONE DIPROPIONATE AUGMENTED [Concomitant]
     Active Substance: BETAMETHASONE DIPROPIONATE

REACTIONS (6)
  - Sleep disorder due to a general medical condition [Recovering/Resolving]
  - Psoriasis [Recovering/Resolving]
  - Dry skin [Recovering/Resolving]
  - Skin exfoliation [Recovering/Resolving]
  - Pruritus [Recovering/Resolving]
  - Product use in unapproved indication [Unknown]

NARRATIVE: CASE EVENT DATE: 20240301
